FAERS Safety Report 12406281 (Version 1)
Quarter: 2016Q2

REPORT INFORMATION
  Report Type: Report from Study
  Country: VE (occurrence: VE)
  Receive Date: 20160526
  Receipt Date: 20160526
  Transmission Date: 20160815
  Serious: Yes (Other)
  Sender: FDA-Public Use
  Company Number: VE-ROCHE-1762797

PATIENT
  Age: 43 Year
  Sex: Female

DRUGS (2)
  1. FORADIL [Suspect]
     Active Substance: FORMOTEROL FUMARATE
     Indication: ASTHMA
     Route: 048
  2. XOLAIR [Suspect]
     Active Substance: OMALIZUMAB
     Indication: ASTHMA
     Route: 058
     Dates: start: 201411, end: 2015

REACTIONS (8)
  - Asthma [Recovered/Resolved]
  - Hypersensitivity [Recovered/Resolved]
  - House dust allergy [Recovered/Resolved]
  - Malaise [Recovered/Resolved]
  - Mycotic allergy [Recovered/Resolved]
  - Laryngeal oedema [Recovered/Resolved]
  - Asthmatic crisis [Recovered/Resolved]
  - Food intolerance [Recovered/Resolved]

NARRATIVE: CASE EVENT DATE: 201604
